FAERS Safety Report 10182899 (Version 2)
Quarter: 2014Q3

REPORT INFORMATION
  Report Type: Spontaneous
  Country: BR (occurrence: BR)
  Receive Date: 20140520
  Receipt Date: 20140829
  Transmission Date: 20150326
  Serious: Yes (Other)
  Sender: FDA-Public Use
  Company Number: BR-ASTRAZENECA-2014SE33165

PATIENT
  Age: 1021 Month
  Sex: Female
  Weight: 56 kg

DRUGS (12)
  1. SELOPRESSZOK [Suspect]
     Active Substance: HYDROCHLOROTHIAZIDE\METOPROLOL
     Dosage: 50 MG
     Route: 048
     Dates: start: 20140416
  2. UNKNOWN MEDICATION [Concomitant]
     Active Substance: UNSPECIFIED INGREDIENT
     Indication: DIABETES MELLITUS
     Route: 048
  3. QUETIAPINE FUMARATE. [Suspect]
     Active Substance: QUETIAPINE FUMARATE
     Indication: DEMENTIA ALZHEIMER^S TYPE
     Route: 048
     Dates: start: 201403, end: 20140506
  4. QUETIAPINE FUMARATE. [Suspect]
     Active Substance: QUETIAPINE FUMARATE
     Indication: DEMENTIA ALZHEIMER^S TYPE
     Dosage: 50 MG, ONE TABLET AT NIGHT; HALF TABLET BY MORNING
     Route: 048
     Dates: start: 20140507
  5. APRESOLINE HYDROCHLORIDE [Concomitant]
     Active Substance: HYDRALAZINE HYDROCHLORIDE
     Indication: BLOOD PRESSURE FLUCTUATION
  6. UNKNOWN [Concomitant]
     Active Substance: UNSPECIFIED INGREDIENT
     Indication: DIABETES MELLITUS
     Route: 048
  7. ACTUS [Concomitant]
     Indication: DIABETES MELLITUS
  8. SELOZOK [Suspect]
     Active Substance: METOPROLOL SUCCINATE
     Indication: HYPERTENSION
     Route: 048
     Dates: end: 20140415
  9. RAZAPINA [Concomitant]
     Active Substance: MIRTAZAPINE
     Indication: AGITATION
     Dosage: DAILY
     Dates: start: 201407
  10. TRADJENTA [Concomitant]
     Active Substance: LINAGLIPTIN
     Indication: DIABETES MELLITUS
  11. TRILEPTAL [Concomitant]
     Active Substance: OXCARBAZEPINE
     Indication: AGITATION
     Dates: start: 2014
  12. TRILEPTAL [Concomitant]
     Active Substance: OXCARBAZEPINE
     Indication: AGITATION
     Dates: start: 201407, end: 201407

REACTIONS (9)
  - Off label use [Not Recovered/Not Resolved]
  - Wrong technique in drug usage process [None]
  - Restlessness [Recovered/Resolved]
  - Mood altered [Not Recovered/Not Resolved]
  - Off label use [Not Recovered/Not Resolved]
  - Emotional disorder [None]
  - Drug ineffective [Unknown]
  - Blood pressure increased [Recovering/Resolving]
  - Apathy [Recovered/Resolved]

NARRATIVE: CASE EVENT DATE: 2014
